FAERS Safety Report 21246244 (Version 2)
Quarter: 2025Q2

REPORT INFORMATION
  Report Type: Spontaneous
  Country: FR (occurrence: FR)
  Receive Date: 20220824
  Receipt Date: 20250619
  Transmission Date: 20250716
  Serious: Yes (Other)
  Sender: AUROBINDO
  Company Number: FR-AOP-2022000354

PATIENT
  Age: 90 Year
  Sex: Male

DRUGS (5)
  1. OLANZAPINE [Suspect]
     Active Substance: OLANZAPINE
     Indication: Chorea
     Dosage: START DATE UNKNOWN, TITRATED UP TO 7.5 MG DAILY, ADMINISTERED FOR ONE WEEK ON AN UNKNOWN DATES.
     Route: 065
  2. TETRABENAZINE [Suspect]
     Active Substance: TETRABENAZINE
     Indication: Ballismus
     Dosage: START DATE UNKNOWN, A GRADUAL INCREASE UP TO 75 MG DAILY, TREATMENT FOR THREE WEEKS.
     Route: 065
  3. WARFARIN [Concomitant]
     Active Substance: WARFARIN
     Indication: Product used for unknown indication
     Route: 065
  4. COVID-19 vaccination [Concomitant]
     Indication: COVID-19 immunisation
     Route: 065
  5. COVID-19 vaccination [Concomitant]
     Route: 065

REACTIONS (4)
  - Suicidal ideation [Unknown]
  - Depressed mood [Unknown]
  - Drug ineffective for unapproved indication [Unknown]
  - Off label use [Recovered/Resolved]
